FAERS Safety Report 8437582-9 (Version None)
Quarter: 2012Q2

REPORT INFORMATION
  Report Type: 
  Country: None (occurrence: None)
  Receive Date: 20120614
  Receipt Date: 20120416
  Transmission Date: 20120825
  Serious: No
  Sender: FDA-Public Use
  Company Number: US-AMGEN-USASP2012017131

PATIENT
  Age: 69 Year
  Sex: Male
  Weight: 89 kg

DRUGS (12)
  1. ELIGARD [Concomitant]
  2. NILANDRON [Concomitant]
  3. XGEVA [Suspect]
     Indication: OSTEOPOROSIS
     Dosage: 120 MG, QMO
     Route: 058
     Dates: start: 20120117, end: 20120228
  4. COZAAR [Concomitant]
     Indication: HYPERTENSION
  5. RAPAFLO [Concomitant]
     Indication: DYSURIA
     Dosage: 8 MG, QD
     Dates: start: 20111110
  6. ZOMETA [Concomitant]
  7. SYNTHROID [Concomitant]
  8. DETROL LA [Concomitant]
     Indication: PROSTATOMEGALY
  9. COQ10 [Concomitant]
  10. XGEVA [Suspect]
     Indication: PROSTATE CANCER
  11. PAXIL [Concomitant]
  12. ACIPHEX [Concomitant]
     Indication: GASTROOESOPHAGEAL REFLUX DISEASE

REACTIONS (3)
  - INSOMNIA [None]
  - DYSURIA [None]
  - PAINFUL DEFAECATION [None]
